FAERS Safety Report 5675208-8 (Version None)
Quarter: 2008Q2

REPORT INFORMATION
  Report Type: 
  Country: None (occurrence: None)
  Receive Date: 20080303
  Receipt Date: 20070118
  Transmission Date: 20081010
  Serious: Yes (Hospitalization)
  Sender: FDA-Public Use
  Company Number: RB-4821-2007

PATIENT
  Age: 41 Year
  Sex: Male
  Weight: 111.1313 kg

DRUGS (5)
  1. SUBOXONE [Suspect]
     Indication: DRUG DEPENDENCE
     Dosage: 24 MG TID PATIENT
     Dates: start: 20061020, end: 20061029
  2. SUBOXONE [Suspect]
     Indication: DRUG DEPENDENCE
     Dosage: 24 MG TID PATIENT
     Dates: start: 20061030
  3. TYLENOL [Suspect]
     Dosage: 6 GRAMS PER DAY
  4. PROVENTIL [Concomitant]
  5. ANTIDEPRESSANTS [Concomitant]

REACTIONS (1)
  - HEPATIC FAILURE [None]
